FAERS Safety Report 6453726-2 (Version None)
Quarter: 2009Q4

REPORT INFORMATION
  Report Type: 
  Country: None (occurrence: None)
  Receive Date: 20091124
  Receipt Date: 20090826
  Transmission Date: 20100525
  Serious: Yes (Other)
  Sender: FDA-Public Use
  Company Number: US-AMGEN-US361896

PATIENT
  Sex: Female

DRUGS (4)
  1. NPLATE [Suspect]
     Indication: APLASTIC ANAEMIA
     Dates: start: 20090727, end: 20090817
  2. CORTICOSTEROIDS [Concomitant]
  3. IMMUNOGLOBULINS [Concomitant]
     Route: 042
  4. PLATELETS [Concomitant]

REACTIONS (1)
  - DRUG INEFFECTIVE [None]
